FAERS Safety Report 25251769 (Version 3)
Quarter: 2025Q4

REPORT INFORMATION
  Report Type: Spontaneous
  Country: US (occurrence: US)
  Receive Date: 20250429
  Receipt Date: 20251009
  Transmission Date: 20260118
  Serious: No
  Sender: MERCK SHARP & DOHME LLC
  Company Number: US-009507513-2280617

PATIENT
  Sex: Male
  Weight: 97.976 kg

DRUGS (44)
  1. WINREVAIR [Suspect]
     Active Substance: SOTATERCEPT-CSRK
     Indication: Product used for unknown indication
  2. WINREVAIR [Suspect]
     Active Substance: SOTATERCEPT-CSRK
  3. WINREVAIR [Suspect]
     Active Substance: SOTATERCEPT-CSRK
  4. WINREVAIR [Suspect]
     Active Substance: SOTATERCEPT-CSRK
  5. HUMIRA [Concomitant]
     Active Substance: ADALIMUMAB
  6. PREDNISONE [Concomitant]
     Active Substance: PREDNISONE
  7. DEXTROMETHORPHAN HYDROBROMIDE [Concomitant]
     Active Substance: DEXTROMETHORPHAN HYDROBROMIDE
  8. ALBUTEROL SULFATE [Concomitant]
     Active Substance: ALBUTEROL SULFATE
  9. VALSARTAN [Concomitant]
     Active Substance: VALSARTAN
  10. SPIRIVA RESPIMAT [Concomitant]
     Active Substance: TIOTROPIUM BROMIDE
  11. CALCIUM CITRATE [Concomitant]
     Active Substance: CALCIUM CITRATE
  12. SPIRONOLACTONE [Concomitant]
     Active Substance: SPIRONOLACTONE
  13. PANTOPRAZOLE SODIUM [Concomitant]
     Active Substance: PANTOPRAZOLE SODIUM
  14. ACETAMINOPHEN\HYDROCODONE [Concomitant]
     Active Substance: ACETAMINOPHEN\HYDROCODONE
  15. SINGULAIR [Concomitant]
     Active Substance: MONTELUKAST SODIUM
  16. GUAIFENESIN [Concomitant]
     Active Substance: GUAIFENESIN
  17. BUTALBITAL, ASPIRIN, AND CAFFEINE [Concomitant]
     Active Substance: ASPIRIN\BUTALBITAL\CAFFEINE
  18. GABAPENTIN [Concomitant]
     Active Substance: GABAPENTIN
  19. SILDENAFIL CITRATE [Concomitant]
     Active Substance: SILDENAFIL CITRATE
  20. ALENDRONATE SODIUM [Concomitant]
     Active Substance: ALENDRONATE SODIUM
  21. BREZTRI [Concomitant]
     Active Substance: BUDESONIDE\FORMOTEROL\GLYCOPYRROLATE
  22. METOPROLOL SUCCINATE [Concomitant]
     Active Substance: METOPROLOL SUCCINATE
  23. LEVETIRACETAM [Concomitant]
     Active Substance: LEVETIRACETAM
  24. SYMBICORT [Concomitant]
     Active Substance: BUDESONIDE\FORMOTEROL FUMARATE DIHYDRATE
  25. ORENITRAM [Suspect]
     Active Substance: TREPROSTINIL
     Indication: Pulmonary arterial hypertension
     Dosage: STRENGTH: UNK MG
     Route: 048
     Dates: start: 20241230
  26. ORENITRAM [Suspect]
     Active Substance: TREPROSTINIL
     Indication: Pulmonary arterial hypertension
     Dosage: TIME INTERVAL: 0.33333333 DAYS: STRENGTH: 2.5 MG
     Route: 048
  27. ORENITRAM [Suspect]
     Active Substance: TREPROSTINIL
     Indication: Pulmonary arterial hypertension
     Dosage: TIME INTERVAL: 0.33333333 DAYS: STRENGTH: 5 MG
     Route: 048
     Dates: start: 20250219
  28. ORENITRAM [Suspect]
     Active Substance: TREPROSTINIL
     Indication: Pulmonary arterial hypertension
     Dosage: TIME INTERVAL: 0.33333333 DAYS: STRENGTH: 0.25 MG, 5 MG AND 1 MG. DOSE: 6.25 MG, TID.
     Route: 048
  29. JARDIANCE [Concomitant]
     Active Substance: EMPAGLIFLOZIN
  30. VITAMINS [Concomitant]
     Active Substance: VITAMINS
  31. TRAMADOL HCL [Concomitant]
     Active Substance: TRAMADOL HYDROCHLORIDE
  32. OPSUMIT [Concomitant]
     Active Substance: MACITENTAN
  33. POTASSIUM CHLORIDE [Concomitant]
     Active Substance: POTASSIUM CHLORIDE
  34. CALCITRIOL [Concomitant]
     Active Substance: CALCITRIOL
  35. OXYGEN [Concomitant]
     Active Substance: OXYGEN
  36. FASENRA [Concomitant]
     Active Substance: BENRALIZUMAB
  37. BACTRIM [Concomitant]
     Active Substance: SULFAMETHOXAZOLE\TRIMETHOPRIM
  38. TORSEMIDE [Concomitant]
     Active Substance: TORSEMIDE
  39. PREDNISOLONE [Concomitant]
     Active Substance: PREDNISOLONE
  40. CYCLOBENZAPRINE HYDROCHLORIDE [Concomitant]
     Active Substance: CYCLOBENZAPRINE HYDROCHLORIDE
  41. ATROPINE\DIPHENOXYLATE [Concomitant]
     Active Substance: ATROPINE\DIPHENOXYLATE
  42. AZITHROMYCIN [Concomitant]
     Active Substance: AZITHROMYCIN
  43. ONDANSETRON HYDROCHLORIDE [Concomitant]
     Active Substance: ONDANSETRON HYDROCHLORIDE
  44. BUTALBITAL, ACETAMINOPHEN, AND CAFFEINE [Concomitant]
     Active Substance: ACETAMINOPHEN\BUTALBITAL\CAFFEINE

REACTIONS (5)
  - Hypoaesthesia oral [Unknown]
  - Oral pain [Unknown]
  - Dry throat [Unknown]
  - Dry mouth [Unknown]
  - Pruritus [Unknown]
